FAERS Safety Report 11862419 (Version 1)
Quarter: 2015Q4

REPORT INFORMATION
  Report Type: Spontaneous
  Country: GB (occurrence: GB)
  Receive Date: 20151223
  Receipt Date: 20151223
  Transmission Date: 20160305
  Serious: Yes (Other)
  Sender: FDA-Public Use
  Company Number: GB-AUROBINDO-AUR-APL-2015-11623

PATIENT
  Age: 27 Year
  Sex: Female
  Weight: 69.85 kg

DRUGS (2)
  1. CITALOPRAM [Suspect]
     Active Substance: CITALOPRAM HYDROBROMIDE
     Dosage: DOSE INCREASED TO 40 MG
     Route: 048
  2. CITALOPRAM [Suspect]
     Active Substance: CITALOPRAM HYDROBROMIDE
     Indication: DEPRESSION
     Dosage: 10 MG, UNK
     Route: 048

REACTIONS (4)
  - Salivary hypersecretion [Not Recovered/Not Resolved]
  - Fatigue [Not Recovered/Not Resolved]
  - Aphasia [Not Recovered/Not Resolved]
  - Palpitations [Not Recovered/Not Resolved]
